FAERS Safety Report 8239564-9 (Version None)
Quarter: 2012Q1

REPORT INFORMATION
  Report Type: 
  Country: None (occurrence: None)
  Receive Date: 20120328
  Receipt Date: 20120321
  Transmission Date: 20120608
  Serious: Yes (Death)
  Sender: FDA-Public Use
  Company Number: US-JNJFOC-20120310557

PATIENT
  Age: 39 Year
  Sex: Male

DRUGS (2)
  1. SLEEPING PILL NOS [Suspect]
     Indication: PRODUCT USED FOR UNKNOWN INDICATION
     Route: 065
     Dates: start: 20120317, end: 20120317
  2. STELARA [Suspect]
     Indication: PSORIASIS
     Route: 058
     Dates: start: 20120315

REACTIONS (2)
  - COMPLETED SUICIDE [None]
  - OVERDOSE [None]
